FAERS Safety Report 10884773 (Version 1)
Quarter: 2015Q1

REPORT INFORMATION
  Report Type: Spontaneous
  Country: US (occurrence: US)
  Receive Date: 20150304
  Receipt Date: 20150304
  Transmission Date: 20150721
  Serious: No
  Sender: FDA-Public Use
  Company Number: US-EMD SERONO-8014212

PATIENT

DRUGS (1)
  1. SAIZEN [Suspect]
     Active Substance: SOMATROPIN
     Indication: POSTPARTUM HYPOPITUITARISM
     Route: 058

REACTIONS (1)
  - Unevaluable event [Unknown]
